FAERS Safety Report 6088912-7 (Version None)
Quarter: 2009Q1

REPORT INFORMATION
  Report Type: 
  Country: None (occurrence: None)
  Receive Date: 20090224
  Receipt Date: 20090213
  Transmission Date: 20090719
  Serious: Yes (Other)
  Sender: FDA-Public Use
  Company Number: US-AMGEN-QUU333617

PATIENT
  Sex: Female

DRUGS (2)
  1. ENBREL [Suspect]
     Indication: RHEUMATOID ARTHRITIS
     Route: 058
     Dates: start: 20031001
  2. ARAVA [Concomitant]
     Route: 048
     Dates: start: 20080501

REACTIONS (2)
  - OCULAR HYPERAEMIA [None]
  - VITREOUS DISORDER [None]
